FAERS Safety Report 10181142 (Version 1)
Quarter: 2014Q2

REPORT INFORMATION
  Report Type: Spontaneous
  Country: US (occurrence: US)
  Receive Date: 20140519
  Receipt Date: 20140519
  Transmission Date: 20141212
  Serious: No
  Sender: FDA-Public Use
  Company Number: US-AMGEN INC.-USASP2014026685

PATIENT
  Sex: Female

DRUGS (1)
  1. PROLIA [Suspect]
     Indication: OSTEOPOROSIS
     Dosage: UNK UNK, Q6MO
     Route: 065
     Dates: start: 201206

REACTIONS (6)
  - Laboratory test abnormal [Unknown]
  - Tooth loss [Unknown]
  - Skin exfoliation [Not Recovered/Not Resolved]
  - Device failure [Unknown]
  - Lacrimation increased [Unknown]
  - Eyelid disorder [Unknown]
